FAERS Safety Report 8774847 (Version 2)
Quarter: 2013Q4

REPORT INFORMATION
  Report Type: Spontaneous
  Country: US (occurrence: US)
  Receive Date: 20120910
  Receipt Date: 20131105
  Transmission Date: 20140711
  Serious: Yes (Life-Threatening)
  Sender: FDA-Public Use
  Company Number: US-009507513-1209USA000344

PATIENT
  Age: 33 Year
  Sex: Female

DRUGS (5)
  1. SAPHRIS [Suspect]
     Dosage: 5MG CHERRY FLAVOUR TAKEN Q
     Route: 060
  2. LAMICTAL [Concomitant]
  3. ABILIFY [Concomitant]
  4. RESTORIL (TEMAZEPAM) [Concomitant]
  5. TOPAMAX [Concomitant]

REACTIONS (1)
  - Mood swings [Unknown]
